FAERS Safety Report 6038343-0 (Version None)
Quarter: 2009Q1

REPORT INFORMATION
  Report Type: 
  Country: None (occurrence: None)
  Receive Date: 20090114
  Receipt Date: 20090114
  Transmission Date: 20090719
  Serious: Yes (Hospitalization)
  Sender: FDA-Public Use
  Company Number: None

PATIENT
  Age: 55 Year
  Sex: Male
  Weight: 121 kg

DRUGS (2)
  1. WARFARIN SODIUM [Suspect]
     Indication: DEEP VEIN THROMBOSIS
     Dates: start: 20081020, end: 20081226
  2. ENOXAPARIN SODIUM [Suspect]
     Dosage: 120 MG EVERY DAY SQ
     Route: 058
     Dates: start: 20081221, end: 20081226

REACTIONS (7)
  - ABDOMINAL PAIN UPPER [None]
  - ANAEMIA [None]
  - DYSPNOEA [None]
  - GASTRIC HAEMORRHAGE [None]
  - HAEMORRHAGE [None]
  - INTERNATIONAL NORMALISED RATIO INCREASED [None]
  - MUSCLE HAEMORRHAGE [None]
